FAERS Safety Report 7629531-8 (Version None)
Quarter: 2011Q3

REPORT INFORMATION
  Report Type: 
  Country: None (occurrence: None)
  Receive Date: 20110701
  Receipt Date: 20110320
  Transmission Date: 20111222
  Serious: Yes (Hospitalization)
  Sender: FDA-Public Use
  Company Number: 7049314

PATIENT
  Age: 34 Year
  Sex: Female

DRUGS (27)
  1. REBIF [Suspect]
     Indication: MULTIPLE SCLEROSIS
     Dosage: 44 MCG, 3 IN 1 WK, SUBCUTANEOUS
     Route: 058
     Dates: start: 20110113
  2. PROMETHAZINE [Concomitant]
  3. VITAMIN D [Concomitant]
  4. BACLOFEN [Concomitant]
  5. MULTIVITAMIN (MULTIVITAMIN /00831701/) [Concomitant]
  6. CYANOCOBALAMIN [Concomitant]
  7. POTASSIUM CHLORIDE [Concomitant]
  8. FLOVENT [Concomitant]
  9. AMRIX (ALL OTHER THERAPEUTIC PRODUCTS) [Concomitant]
  10. LOVENOX [Concomitant]
  11. FLEXERIL [Concomitant]
  12. PREVACID [Concomitant]
  13. LASIX [Concomitant]
  14. VALIUM [Concomitant]
  15. LISINOPRIL [Concomitant]
  16. BLOOD THINNERS (ALL OTHER THERAPEUTIC PRODUCTS) [Concomitant]
  17. MAGNESIUM (MAGNESIUM) [Concomitant]
  18. CALCIUM (CALCIUM) [Concomitant]
  19. CRESTOR [Concomitant]
  20. PERCOCET [Concomitant]
  21. MECLIZINE [Concomitant]
  22. METOPROLOL TARTRATE [Concomitant]
  23. ACIPHEX [Concomitant]
  24. COUMADIN [Concomitant]
  25. TRILEPTAL [Concomitant]
  26. TOPAMAX [Concomitant]
  27. PROAIR (ALL OTHER THERAPEUTIC PRODUCTS) [Concomitant]

REACTIONS (5)
  - MULTIPLE SCLEROSIS RELAPSE [None]
  - BLOOD THYROID STIMULATING HORMONE DECREASED [None]
  - INAPPROPRIATE SCHEDULE OF DRUG ADMINISTRATION [None]
  - INTERNATIONAL NORMALISED RATIO INCREASED [None]
  - INJECTION SITE HAEMATOMA [None]
